FAERS Safety Report 6601318-4 (Version None)
Quarter: 2010Q1

REPORT INFORMATION
  Report Type: 
  Country: None (occurrence: None)
  Receive Date: 20100225
  Receipt Date: 20100212
  Transmission Date: 20100710
  Serious: No
  Sender: FDA-Public Use
  Company Number: US-ROXANE LABORATORIES, INC.-2010-RO-00164RO

PATIENT
  Sex: Male

DRUGS (2)
  1. OXCARBAZEPINE [Suspect]
     Indication: AFFECTIVE DISORDER
     Dosage: 1800 MG
     Dates: start: 20100211, end: 20100212
  2. OXCARBAZEPINE [Suspect]
     Dosage: 1200 MG
     Dates: end: 20100210

REACTIONS (4)
  - ANXIETY [None]
  - DYSPNOEA [None]
  - MOOD ALTERED [None]
  - VERTIGO [None]
